FAERS Safety Report 4999352-3 (Version None)
Quarter: 2006Q2

REPORT INFORMATION
  Report Type: 
  Country: None (occurrence: None)
  Receive Date: 20060509
  Receipt Date: 20060509
  Transmission Date: 20061013
  Serious: Yes (Life-Threatening, Hospitalization)
  Sender: FDA-Public Use
  Company Number: None

PATIENT
  Age: 49 Year
  Sex: Male
  Weight: 74 kg

DRUGS (10)
  1. HUMULIN 70/30 [Suspect]
     Indication: DIABETES MELLITUS INSULIN-DEPENDENT
     Dosage: 30 UNITS SQ  AM;  15 UNITS SQ PM
     Route: 058
  2. DOCUSATE [Concomitant]
  3. ASPIRIN [Concomitant]
  4. VALSARTAN [Concomitant]
  5. ZINC [Concomitant]
  6. RANITIDINE [Concomitant]
  7. CLONIDINE [Concomitant]
  8. WARFARIN SODIUM [Concomitant]
  9. METOCLOPRAMIDE [Concomitant]
  10. FLUVASTATIN [Concomitant]

REACTIONS (2)
  - BLOOD GLUCOSE INCREASED [None]
  - TREATMENT NONCOMPLIANCE [None]
